FAERS Safety Report 9626119 (Version 2)
Quarter: 2013Q4

REPORT INFORMATION
  Report Type: Spontaneous
  Country: FR (occurrence: FR)
  Receive Date: 20131016
  Receipt Date: 20131106
  Transmission Date: 20140711
  Serious: Yes (Hospitalization, Other)
  Sender: FDA-Public Use
  Company Number: FR-MERCK-1310FRA003658

PATIENT
  Age: 65 Year
  Sex: Male

DRUGS (8)
  1. NOXAFIL [Suspect]
     Dosage: 200 MG, TID
     Route: 048
     Dates: start: 20130814
  2. NEORAL [Interacting]
     Dosage: 800 MG, QD
     Route: 048
     Dates: start: 20130601
  3. NEORAL [Interacting]
     Dosage: 100 MG, BID
     Route: 048
     Dates: start: 20130709
  4. TAHOR [Interacting]
     Dosage: 80 MG, QD
     Route: 048
     Dates: start: 20130814, end: 20130910
  5. TRIATEC (RAMIPRIL) [Concomitant]
     Dosage: 2.5 MG, BID
     Route: 048
     Dates: start: 20130814, end: 20130910
  6. KARDEGIC [Concomitant]
     Dosage: 75 MG, QD
     Route: 048
     Dates: start: 20130814
  7. EUPANTOL [Concomitant]
     Dosage: 40 MG, QD
     Route: 048
     Dates: start: 20130814
  8. BISOCOR [Concomitant]
     Dosage: 2.5 MG, QD
     Route: 048
     Dates: start: 20130814

REACTIONS (2)
  - Rhabdomyolysis [Recovering/Resolving]
  - Renal failure acute [Not Recovered/Not Resolved]
